FAERS Safety Report 24994556 (Version 1)
Quarter: 2025Q1

REPORT INFORMATION
  Report Type: Spontaneous
  Country: JP (occurrence: JP)
  Receive Date: 20250221
  Receipt Date: 20250221
  Transmission Date: 20250408
  Serious: Yes (Death)
  Sender: NOVARTIS
  Company Number: JP-SANDOZ-SDZ2025JP004517

PATIENT

DRUGS (3)
  1. CYCLOSPORINE [Suspect]
     Active Substance: CYCLOSPORINE
     Indication: Premedication
     Route: 065
  2. ETOPOSIDE [Suspect]
     Active Substance: ETOPOSIDE
     Indication: Premedication
     Route: 042
  3. DECADRON (DEXAMETHASONE SODIUM PHOSPHATE) [Suspect]
     Active Substance: DEXAMETHASONE SODIUM PHOSPHATE
     Indication: Premedication
     Route: 065

REACTIONS (2)
  - Acute hepatic failure [Fatal]
  - Off label use [Unknown]
